FAERS Safety Report 6042225-8 (Version None)
Quarter: 2009Q1

REPORT INFORMATION
  Report Type: 
  Country: None (occurrence: None)
  Receive Date: 20090116
  Receipt Date: 20090115
  Transmission Date: 20090719
  Serious: Yes (Life-Threatening, Hospitalization, Other)
  Sender: FDA-Public Use
  Company Number: CA-ASTRAZENECA-2009UW01284

PATIENT
  Age: 76 Year
  Sex: Male

DRUGS (9)
  1. CRESTOR [Suspect]
     Route: 048
  2. ACEBUTOLOL HYDROCHLORIDE [Concomitant]
  3. ALLOPURINOL [Concomitant]
  4. BISOPROLOL [Concomitant]
  5. CASODEX [Concomitant]
     Route: 048
  6. DILAUDID [Concomitant]
  7. HYDROMORPHONE HCL [Concomitant]
     Route: 048
  8. LASIX [Concomitant]
  9. TYLENOL (CAPLET) [Concomitant]

REACTIONS (5)
  - BLOOD CREATINE PHOSPHOKINASE INCREASED [None]
  - BLOOD CREATININE INCREASED [None]
  - LIVER FUNCTION TEST ABNORMAL [None]
  - MYOGLOBIN URINE PRESENT [None]
  - RHABDOMYOLYSIS [None]
